FAERS Safety Report 15797133 (Version 2)
Quarter: 2019Q2

REPORT INFORMATION
  Report Type: Spontaneous
  Country: US (occurrence: US)
  Receive Date: 20190108
  Receipt Date: 20190411
  Transmission Date: 20190711
  Serious: No
  Sender: FDA-Public Use
  Company Number: US-TEVA-2019-US-994979

PATIENT
  Sex: Female

DRUGS (8)
  1. NEXIUM [Concomitant]
     Active Substance: ESOMEPRAZOLE MAGNESIUM
  2. VITAMIN D NOS [Concomitant]
     Active Substance: VITAMIN D NOS
  3. PAROXETINE. [Concomitant]
     Active Substance: PAROXETINE
  4. METFORMIN [Concomitant]
     Active Substance: METFORMIN HYDROCHLORIDE
  5. LIPITOR [Concomitant]
     Active Substance: ATORVASTATIN CALCIUM
  6. AUSTEDO [Suspect]
     Active Substance: DEUTETRABENAZINE
     Indication: HUNTINGTON^S DISEASE
     Dosage: 24 MILLIGRAM DAILY;
     Route: 048
     Dates: start: 20180511
  7. ZYRTEC-D [Interacting]
     Active Substance: CETIRIZINE HYDROCHLORIDE\PSEUDOEPHEDRINE HYDROCHLORIDE
     Route: 065
  8. ELIQUIS [Concomitant]
     Active Substance: APIXABAN

REACTIONS (1)
  - Drug interaction [Unknown]
